FAERS Safety Report 8379464-7 (Version None)
Quarter: 2012Q2

REPORT INFORMATION
  Report Type: 
  Country: None (occurrence: None)
  Receive Date: 20120523
  Receipt Date: 20120521
  Transmission Date: 20120825
  Serious: Yes (Hospitalization)
  Sender: FDA-Public Use
  Company Number: CN-BRISTOL-MYERS SQUIBB COMPANY-16545931

PATIENT
  Age: 57 Year
  Sex: Male

DRUGS (1)
  1. DASATINIB [Suspect]
     Indication: CHRONIC MYELOID LEUKAEMIA
     Dosage: 19NOV-16DEC07,17DE-23DE,24DEC-2JA8,3-22JN08,23-27JN08,5MR8-11MR,12-MR-7APR,8APR-5MY08,6MAY-23JUN08
     Route: 048
     Dates: start: 20071119

REACTIONS (1)
  - DUODENAL PERFORATION [None]
